FAERS Safety Report 7622114-5 (Version None)
Quarter: 2011Q3

REPORT INFORMATION
  Report Type: 
  Country: None (occurrence: None)
  Receive Date: 20110720
  Receipt Date: 20110314
  Transmission Date: 20111222
  Serious: Yes (Hospitalization, Other)
  Sender: FDA-Public Use
  Company Number: US-BAYER-201040288NA

PATIENT
  Age: 50 Year
  Sex: Female
  Weight: 82 kg

DRUGS (6)
  1. DROSPIRENONE AND ETHINYL ESTRADIOL [Suspect]
     Indication: ACNE
     Dosage: UNK
     Dates: start: 20080801, end: 20090301
  2. LISINOPRIL [Concomitant]
     Dosage: 30 MG, QD
     Route: 048
  3. URSO FORTE [Concomitant]
     Dosage: 500 MG, QD
     Route: 048
  4. YASMIN [Suspect]
     Indication: ACNE
     Dosage: UNK
     Dates: start: 20050501, end: 20080601
  5. CELEBREX [Concomitant]
     Dosage: 200 MG, QD
     Route: 048
  6. YAZ [Suspect]
     Indication: ACNE
     Dosage: UNK
     Dates: start: 20050101, end: 20090101

REACTIONS (6)
  - MYOCARDIAL INFARCTION [None]
  - VENTRICULAR FIBRILLATION [None]
  - CARDIAC DISORDER [None]
  - BRAIN INJURY [None]
  - CARDIAC ARREST [None]
  - INJURY [None]
